FAERS Safety Report 7761740-X (Version None)
Quarter: 2011Q3

REPORT INFORMATION
  Report Type: 
  Country: None (occurrence: None)
  Receive Date: 20110920
  Receipt Date: 20110909
  Transmission Date: 20111222
  Serious: Yes (Other)
  Sender: FDA-Public Use
  Company Number: PHFR2011GB04129

PATIENT
  Sex: Male

DRUGS (2)
  1. RISPERIDONE [Concomitant]
     Dosage: 4 MG/DAY
     Route: 048
  2. CLOZAPINE [Suspect]
     Indication: SCHIZOPHRENIA
     Dosage: 300 MG/DAY
     Route: 048
     Dates: start: 20110204, end: 20110501

REACTIONS (1)
  - SWOLLEN TONGUE [None]
